FAERS Safety Report 13520594 (Version 5)
Quarter: 2019Q3

REPORT INFORMATION
  Report Type: Report from Study
  Country: None (occurrence: NL)
  Receive Date: 20170508
  Receipt Date: 20190826
  Transmission Date: 20191004
  Serious: Yes (Hospitalization)
  Sender: FDA-Public Use
  Company Number: NL-ABBVIE-17K-114-1965396-00

PATIENT
  Sex: Male
  Weight: 91 kg

DRUGS (5)
  1. DUODOPA [Suspect]
     Active Substance: CARBIDOPA\LEVODOPA
     Indication: PARKINSON^S DISEASE
     Dosage: MD: 4, CD: 2.7, ED: 2, CND: 2.3
     Route: 050
     Dates: start: 20160421
  2. DUODOPA [Suspect]
     Active Substance: CARBIDOPA\LEVODOPA
     Dosage: MD: 4.0, CD: 3.5, ED: 2.0, CND: 3.2, END: 2.2; 24 HOUR ADMINISTRATION
     Route: 050
  3. DUODOPA [Suspect]
     Active Substance: CARBIDOPA\LEVODOPA
     Dosage: MD: 1.3, CD: 3.3, ED: 2.0, CND: 3.0, END: 2.0 24 HOUR TREATMENT
     Route: 050
  4. MOVICOLON [Concomitant]
     Active Substance: POLYETHYLENE GLYCOL 3350\POTASSIUM CHLORIDE\SODIUM BICARBONATE\SODIUM CHLORIDE
     Indication: PRODUCT USED FOR UNKNOWN INDICATION
  5. CLOZAPINE. [Concomitant]
     Active Substance: CLOZAPINE
     Indication: PRODUCT USED FOR UNKNOWN INDICATION
     Route: 048

REACTIONS (7)
  - Stoma site discharge [Recovered/Resolved]
  - Stoma site haemorrhage [Recovering/Resolving]
  - Stoma site reaction [Recovering/Resolving]
  - Bacterial test positive [Recovering/Resolving]
  - Fibroma [Recovering/Resolving]
  - Stoma site erythema [Recovering/Resolving]
  - Stoma site discomfort [Recovering/Resolving]
